FAERS Safety Report 5659404-1 (Version None)
Quarter: 2008Q1

REPORT INFORMATION
  Report Type: 
  Country: None (occurrence: None)
  Receive Date: 20080311
  Receipt Date: 20080225
  Transmission Date: 20080703
  Serious: Yes (Death, Life-Threatening, Hospitalization, Other)
  Sender: FDA-Public Use
  Company Number: GB-RANBAXY-2008RR-13295

PATIENT

DRUGS (9)
  1. METFORMIN 500MG TABLETS [Suspect]
     Dosage: 500 MG, BID
     Route: 048
     Dates: end: 20080212
  2. AMITRIPTYLINE TABLETS 25MG [Concomitant]
     Dosage: 25 MG, QD
     Route: 048
     Dates: end: 20080212
  3. AMLODIPINE [Concomitant]
     Dosage: 5 MG, QD
     Route: 048
     Dates: end: 20080212
  4. ENALAPRIL MALEATE [Concomitant]
     Dosage: 20 MG, QD
     Route: 048
     Dates: end: 20080212
  5. FUROSEMIDE TABLETS BP 40MG [Concomitant]
     Dosage: 20 MG, QD
     Route: 048
     Dates: end: 20080212
  6. LANSOPRAZOLE 30 MG GASTRO-RESISTANT CAPSULES [Concomitant]
     Dosage: 30 MG, QD
     Route: 048
     Dates: end: 20080212
  7. NOVOLOG MIX 70/30 [Concomitant]
     Dosage: UNK
     Route: 058
     Dates: end: 20080212
  8. QUININE BISULPHATE TABLETS 300MG [Concomitant]
     Dosage: 300 MG, QD
     Route: 048
     Dates: end: 20080212
  9. SIMVASTATIN [Concomitant]
     Dosage: 40 MG, QD
     Route: 048
     Dates: end: 20080212

REACTIONS (3)
  - ISCHAEMIA [None]
  - METABOLIC ACIDOSIS [None]
  - MULTI-ORGAN FAILURE [None]
